FAERS Safety Report 18161307 (Version 1)
Quarter: 2020Q3

REPORT INFORMATION
  Report Type: Spontaneous
  Country: GB (occurrence: GB)
  Receive Date: 20200818
  Receipt Date: 20200818
  Transmission Date: 20201103
  Serious: Yes (Disabling)
  Sender: FDA-Public Use
  Company Number: GB-TEVA-2020-GB-1814374

PATIENT
  Age: 41 Year
  Sex: Female
  Weight: 48 kg

DRUGS (8)
  1. TRAMADOL. [Concomitant]
     Active Substance: TRAMADOL
     Indication: PAIN
     Dosage: 1 ? 2 EVERY 4 HOURS FOR PAIN (MAX 8 TABS DAILY)
     Dates: start: 20200602, end: 20200630
  2. PROPRANOLOL [Concomitant]
     Active Substance: PROPRANOLOL HYDROCHLORIDE
     Indication: ANXIETY
     Dosage: 1 DF
     Dates: start: 20200225
  3. PREGABALIN. [Suspect]
     Active Substance: PREGABALIN
     Dosage: 300 MG
     Route: 048
     Dates: start: 20200221
  4. DESOGESTREL [Concomitant]
     Active Substance: DESOGESTREL
     Indication: CONTRACEPTION
     Dosage: 1 DOSAGE FORMS DAILY; CONTRACEPTION OR WITH...
     Dates: start: 20200402
  5. CELECOXIB. [Concomitant]
     Active Substance: CELECOXIB
     Dosage: 1 DF
     Dates: start: 20200709
  6. ZOMORPH [Concomitant]
     Active Substance: MORPHINE SULFATE
     Dosage: 1 DF
     Dates: start: 20200528
  7. DIAZEPAM. [Concomitant]
     Active Substance: DIAZEPAM
     Dosage: 1 DOSAGE FORMS DAILY; AT NIGHT
     Dates: start: 20200409
  8. SERTRALINE [Concomitant]
     Active Substance: SERTRALINE HYDROCHLORIDE
     Dosage: 2 DF
     Dates: start: 20200402

REACTIONS (1)
  - Peripheral swelling [Recovering/Resolving]
